FAERS Safety Report 5673727-1 (Version None)
Quarter: 2008Q1

REPORT INFORMATION
  Report Type: 
  Country: None (occurrence: None)
  Receive Date: 20080319
  Receipt Date: 20080317
  Transmission Date: 20080703
  Serious: Yes (Death)
  Sender: FDA-Public Use
  Company Number: GB-MERCK-0803GBR00063

PATIENT
  Age: 80 Year
  Sex: Female

DRUGS (9)
  1. ZOCOR [Suspect]
     Route: 048
  2. OMEPRAZOLE [Suspect]
     Indication: GASTROINTESTINAL DISORDER
     Route: 048
  3. ADALAT [Concomitant]
     Route: 065
  4. ASPIRIN [Concomitant]
     Route: 065
  5. DIPYRIDAMOLE [Concomitant]
     Route: 065
  6. POTASSIUM BICARBONATE AND SODIUM ALGINATE [Concomitant]
     Route: 065
  7. METOPROLOL [Concomitant]
     Route: 065
  8. ACETAMINOPHEN [Concomitant]
     Route: 065
  9. PERINDOPRIL [Concomitant]
     Route: 065

REACTIONS (1)
  - DYSPHAGIA [None]
